FAERS Safety Report 9842191 (Version 1)
Quarter: 2014Q1

REPORT INFORMATION
  Report Type: Spontaneous
  Country: US (occurrence: US)
  Receive Date: 20140124
  Receipt Date: 20140124
  Transmission Date: 20141002
  Serious: Yes (Death)
  Sender: FDA-Public Use
  Company Number: US-GLAXOSMITHKLINE-A1056918A

PATIENT
  Age: 75 Year
  Sex: Male

DRUGS (7)
  1. ARIXTRA [Suspect]
     Indication: THROMBOSIS
     Dosage: 7.5MG PER DAY
     Route: 058
     Dates: start: 201310
  2. OXYCODONE [Concomitant]
  3. LEVOTHYROXINE [Concomitant]
  4. VITAMINS [Concomitant]
  5. CONCURRENT MEDICATIONS [Concomitant]
  6. CHEMOTHERAPY [Concomitant]
     Indication: PROSTATE CANCER
     Dates: end: 20131026
  7. WARFARIN [Concomitant]
     Indication: THROMBOSIS
     Dates: start: 201301

REACTIONS (3)
  - Prostate cancer [Fatal]
  - Prostate cancer [Unknown]
  - Hospice care [Unknown]
